FAERS Safety Report 8593403-5 (Version None)
Quarter: 2012Q3

REPORT INFORMATION
  Report Type: 
  Country: None (occurrence: None)
  Receive Date: 20120814
  Receipt Date: 20120810
  Transmission Date: 20120928
  Serious: Yes (Death, Hospitalization, Other)
  Sender: FDA-Public Use
  Company Number: PHHY2009JP22903

PATIENT
  Sex: Male

DRUGS (5)
  1. TASIGNA [Suspect]
     Dosage: 400 MG, PER DAY
     Route: 048
     Dates: start: 20090425, end: 20110824
  2. LOXONIN [Concomitant]
     Indication: LUMBAR VERTEBRAL FRACTURE
     Dosage: 120 MG, UNK
     Route: 048
     Dates: start: 20090215
  3. TASIGNA [Suspect]
     Indication: CHRONIC MYELOID LEUKAEMIA
     Dosage: 800 MG, DAILY
     Route: 048
     Dates: start: 20090415, end: 20090419
  4. ALLEGRA [Concomitant]
     Indication: CHRONIC MYELOID LEUKAEMIA
     Dosage: 120 MG, UNK
     Route: 048
     Dates: start: 20090215, end: 20090518
  5. PREDNISOLONE [Concomitant]
     Indication: CHRONIC MYELOID LEUKAEMIA
     Dosage: 5 MG, UNK
     Route: 048
     Dates: start: 20090215, end: 20090518

REACTIONS (5)
  - PNEUMONIA [None]
  - BLOOD URIC ACID INCREASED [None]
  - C-REACTIVE PROTEIN INCREASED [None]
  - LIPASE INCREASED [None]
  - BLOOD UREA INCREASED [None]
